FAERS Safety Report 15221402 (Version 1)
Quarter: 2018Q3

REPORT INFORMATION
  Report Type: Spontaneous
  Country: US (occurrence: US)
  Receive Date: 20180705
  Receipt Date: 20180705
  Transmission Date: 20181010
  Serious: Yes (Hospitalization)
  Sender: FDA-Public Use
  Company Number: None

PATIENT
  Sex: Female

DRUGS (10)
  1. XELJANZ XR [Suspect]
     Active Substance: TOFACITINIB CITRATE
     Indication: RHEUMATOID ARTHRITIS
     Route: 048
     Dates: start: 20170802
  2. DEXILANT, GABAPENTIN [Concomitant]
  3. METOCLOPRAM, MICROZIDE [Concomitant]
  4. VITAMIN C, ZALEPLON [Concomitant]
  5. ALLEGRA, ARAVA [Concomitant]
  6. CYCLOBENZAPR, HYDROCHLOROT [Concomitant]
  7. PROVENTIL, VESICARE [Concomitant]
  8. LOSARTAN POT, MELOXICAM [Concomitant]
  9. PHENTERMINE, POTASSIUM [Concomitant]
  10. MOBIC, NORCO [Concomitant]

REACTIONS (3)
  - Drug dose omission [None]
  - Pain in extremity [None]
  - Surgery [None]
